FAERS Safety Report 13059355 (Version 2)
Quarter: 2016Q4

REPORT INFORMATION
  Report Type: Spontaneous
  Country: US (occurrence: US)
  Receive Date: 20161223
  Receipt Date: 20161223
  Transmission Date: 20170207
  Serious: No
  Sender: FDA-Public Use
  Company Number: US-BAUSCH-BL-2016-023641

PATIENT
  Age: 64 Year
  Sex: Female

DRUGS (4)
  1. XENAZINE [Suspect]
     Active Substance: TETRABENAZINE
     Route: 048
     Dates: start: 2016
  2. XENAZINE [Suspect]
     Active Substance: TETRABENAZINE
     Indication: TARDIVE DYSKINESIA
     Route: 048
     Dates: start: 20160822
  3. XENAZINE [Suspect]
     Active Substance: TETRABENAZINE
     Route: 048
     Dates: start: 2016
  4. XENAZINE [Suspect]
     Active Substance: TETRABENAZINE
     Dates: start: 20160923

REACTIONS (6)
  - Off label use [Unknown]
  - Ear pain [Unknown]
  - Extra dose administered [Unknown]
  - Cough [Unknown]
  - Tongue disorder [Unknown]
  - Sneezing [Unknown]

NARRATIVE: CASE EVENT DATE: 2016
